FAERS Safety Report 19974169 (Version 1)
Quarter: 2021Q4

REPORT INFORMATION
  Report Type: Spontaneous
  Country: US (occurrence: US)
  Receive Date: 20211019
  Receipt Date: 20211019
  Transmission Date: 20220304
  Serious: Yes (Hospitalization)
  Sender: FDA-Public Use
  Company Number: None

PATIENT
  Age: 30 Year
  Sex: Male
  Weight: 82 kg

DRUGS (7)
  1. CYCLOPHOSPHAMIDE [Suspect]
     Active Substance: CYCLOPHOSPHAMIDE
     Dates: end: 20210905
  2. CYTARABINE [Suspect]
     Active Substance: CYTARABINE
     Dates: end: 20210905
  3. MERCAPTOPURINE [Suspect]
     Active Substance: MERCAPTOPURINE
     Dates: end: 20210915
  4. ONCASPAR [Suspect]
     Active Substance: PEGASPARGASE
     Dates: end: 20210930
  5. RITUXIMAB [Suspect]
     Active Substance: RITUXIMAB
     Dates: end: 20210912
  6. VINCRISTINE SULFATE [Suspect]
     Active Substance: VINCRISTINE SULFATE
     Dates: end: 20210926
  7. METHOTREXATE [Suspect]
     Active Substance: METHOTREXATE
     Dates: end: 20210830

REACTIONS (8)
  - Chills [None]
  - Nausea [None]
  - Vomiting [None]
  - Hypotension [None]
  - Lactic acidosis [None]
  - Pancytopenia [None]
  - Febrile neutropenia [None]
  - Septic shock [None]

NARRATIVE: CASE EVENT DATE: 20211007
